FAERS Safety Report 10256711 (Version 1)
Quarter: 2014Q2

REPORT INFORMATION
  Report Type: Report from Study
  Country: NL (occurrence: NL)
  Receive Date: 20140624
  Receipt Date: 20140624
  Transmission Date: 20141212
  Serious: Yes (Hospitalization, Other)
  Sender: FDA-Public Use
  Company Number: NL-JNJFOC-20140201601

PATIENT
  Age: 68 Year
  Sex: Male

DRUGS (10)
  1. XARELTO [Suspect]
     Indication: ATRIAL FIBRILLATION
     Route: 048
     Dates: start: 20140108
  2. XARELTO [Suspect]
     Indication: ATRIAL FIBRILLATION
     Route: 048
     Dates: start: 20131105
  3. XARELTO [Suspect]
     Indication: CEREBROVASCULAR ACCIDENT PROPHYLAXIS
     Route: 048
     Dates: start: 20131105
  4. XARELTO [Suspect]
     Indication: CEREBROVASCULAR ACCIDENT PROPHYLAXIS
     Route: 048
     Dates: start: 20140108
  5. BISOPROLOL [Concomitant]
     Route: 065
     Dates: start: 20081224
  6. DIGOXINE [Concomitant]
     Route: 065
     Dates: start: 20130828
  7. LISINOPRIL [Concomitant]
     Route: 065
     Dates: start: 19900206
  8. NEDIOS [Concomitant]
     Route: 065
     Dates: start: 19970912
  9. CRESTOR [Concomitant]
     Route: 065
     Dates: start: 20120911
  10. RIVOTRIL [Concomitant]
     Route: 065
     Dates: start: 19991206

REACTIONS (2)
  - Acute myocardial infarction [Recovered/Resolved]
  - Embolic stroke [Recovering/Resolving]
